FAERS Safety Report 6035142-0 (Version None)
Quarter: 2009Q1

REPORT INFORMATION
  Report Type: 
  Country: None (occurrence: None)
  Receive Date: 20090112
  Receipt Date: 20081231
  Transmission Date: 20090719
  Serious: No
  Sender: FDA-Public Use
  Company Number: US-B.I. PHARMACEUTICALS,INC./RIDGEFIELD-2009-BP-00064BP

PATIENT
  Sex: Female

DRUGS (5)
  1. SPIRIVA [Suspect]
     Indication: CHRONIC OBSTRUCTIVE PULMONARY DISEASE
     Dosage: 18MCG
     Route: 055
     Dates: start: 20071001
  2. ADVAIR DISKUS 250/50 [Concomitant]
  3. ALBUTEROL [Concomitant]
  4. WELLBUTRIN XL [Concomitant]
  5. PROZAC [Concomitant]

REACTIONS (1)
  - HEPATITIS C [None]
